FAERS Safety Report 8850117 (Version 1)
Quarter: 2012Q4

REPORT INFORMATION
  Report Type: 
  Country: IN (occurrence: IN)
  Receive Date: 20121019
  Receipt Date: 20121019
  Transmission Date: 20130627
  Serious: Yes (Life-Threatening)
  Sender: FDA-Public Use
  Company Number: IN-ROXANE LABORATORIES, INC.-2012-RO-02014RO

PATIENT
  Age: 3 Year
  Sex: Male

DRUGS (3)
  1. NAPROXEN [Suspect]
     Indication: JUVENILE ARTHRITIS
  2. METHOTREXATE [Suspect]
     Indication: JUVENILE ARTHRITIS
  3. SULFASALAZINE [Suspect]
     Indication: JUVENILE ARTHRITIS

REACTIONS (1)
  - Histiocytosis haematophagic [Recovered/Resolved]
